FAERS Safety Report 20392760 (Version 1)
Quarter: 2022Q1

REPORT INFORMATION
  Report Type: Spontaneous
  Country: US (occurrence: None)
  Receive Date: 20220128
  Receipt Date: 20220128
  Transmission Date: 20220423
  Serious: No
  Sender: FDA-Public Use
  Company Number: None

PATIENT
  Age: 31 Year
  Sex: Female

DRUGS (1)
  1. LUPRON DEPOT [Suspect]
     Active Substance: LEUPROLIDE ACETATE
     Indication: Infertility female
     Dosage: FREQUENCY : MONTHLY;?
     Route: 030
     Dates: start: 20211228

REACTIONS (1)
  - Dysuria [None]

NARRATIVE: CASE EVENT DATE: 20220115
